FAERS Safety Report 19043676 (Version 2)
Quarter: 2021Q2

REPORT INFORMATION
  Report Type: Spontaneous
  Country: US (occurrence: US)
  Receive Date: 20210322
  Receipt Date: 20210607
  Transmission Date: 20210717
  Serious: No
  Sender: FDA-Public Use
  Company Number: US-GALDERMA-US2020051730

PATIENT
  Age: 14 Year
  Sex: Female

DRUGS (8)
  1. PROACTIV GENTLE FORMULA CLARIFYING CLEANSER [Concomitant]
     Active Substance: SALICYLIC ACID
     Indication: ACNE
     Route: 061
  2. PROACTIV MD ADAPALENE ACNE TREATMENT [Suspect]
     Active Substance: ADAPALENE
     Indication: ACNE
     Dosage: 0.1%
     Route: 061
     Dates: start: 202011
  3. PROACTIV MD DEEP CLEANSING FACE WASH [Concomitant]
     Active Substance: COSMETICS
     Indication: ACNE
     Route: 061
     Dates: start: 202011
  4. BENADRYL [Concomitant]
     Active Substance: DIPHENHYDRAMINE HYDROCHLORIDE
     Indication: PRODUCT USED FOR UNKNOWN INDICATION
     Route: 065
  5. PROACTIV GENTLE FORMULA CLARIFYING DAY LOTION [Concomitant]
     Indication: ACNE
     Route: 061
  6. PROACTIV MD DAILY OIL CONTROL SPF 30 [Suspect]
     Active Substance: AVOBENZONE\OCTISALATE\OCTOCRYLENE
     Indication: ACNE
     Route: 061
     Dates: start: 202011
  7. PROACTIV GENTLE FORMULA CLARIFYING TONER [Concomitant]
     Indication: ACNE
     Route: 061
  8. PROACTIV GENTLE FORMULA CLARIFYING NIGHT LOTION [Concomitant]
     Indication: ACNE
     Route: 061

REACTIONS (7)
  - Skin hypopigmentation [Recovering/Resolving]
  - Skin irritation [Recovering/Resolving]
  - Erythema [Recovering/Resolving]
  - Pruritus [Recovering/Resolving]
  - Acne [Recovering/Resolving]
  - Rash [Unknown]
  - Drug ineffective [Unknown]

NARRATIVE: CASE EVENT DATE: 202011
